FAERS Safety Report 7382950-X (Version None)
Quarter: 2011Q1

REPORT INFORMATION
  Report Type: 
  Country: None (occurrence: None)
  Receive Date: 20110328
  Receipt Date: 20110328
  Transmission Date: 20110831
  Serious: Yes (Hospitalization)
  Sender: FDA-Public Use
  Company Number: None

PATIENT
  Sex: Female
  Weight: 64 kg

DRUGS (12)
  1. COZAAR [Concomitant]
  2. COREG [Concomitant]
  3. EFFIENT [Concomitant]
  4. DECADRON [Concomitant]
  5. PRILOSEC [Concomitant]
  6. CRESTOR [Concomitant]
  7. SYNTHROID [Concomitant]
  8. DOCETAXEL [Suspect]
     Dosage: 131 MG
  9. ASPIRIN [Concomitant]
  10. COMPAZINE [Concomitant]
  11. FLEXERIL [Concomitant]
  12. LORTAB [Concomitant]

REACTIONS (4)
  - CHEST DISCOMFORT [None]
  - ANXIETY [None]
  - PAIN [None]
  - BLOOD PRESSURE INCREASED [None]
